FAERS Safety Report 21288507 (Version 1)
Quarter: 2022Q3

REPORT INFORMATION
  Report Type: Spontaneous
  Country: US (occurrence: US)
  Receive Date: 20220902
  Receipt Date: 20220902
  Transmission Date: 20221027
  Serious: No
  Sender: FDA-Public Use
  Company Number: US-ABBVIE-22K-163-4436663-00

PATIENT
  Sex: Female

DRUGS (1)
  1. SKYRIZI [Suspect]
     Active Substance: RISANKIZUMAB-RZAA
     Indication: Product used for unknown indication
     Route: 058

REACTIONS (7)
  - Gingival erythema [Recovering/Resolving]
  - Pain [Recovering/Resolving]
  - Dysphagia [Recovering/Resolving]
  - Gingival discomfort [Recovering/Resolving]
  - Haemorrhage [Recovering/Resolving]
  - COVID-19 [Unknown]
  - Viral infection [Unknown]

NARRATIVE: CASE EVENT DATE: 20211201
